FAERS Safety Report 25766331 (Version 2)
Quarter: 2025Q3

REPORT INFORMATION
  Report Type: Spontaneous
  Country: US (occurrence: US)
  Receive Date: 20250905
  Receipt Date: 20250925
  Transmission Date: 20251020
  Serious: Yes (Death, Life-Threatening, Hospitalization, Other)
  Sender: ACCORD
  Company Number: US-Accord-502800

PATIENT
  Age: 30 Year
  Sex: Female

DRUGS (6)
  1. ETOPOSIDE [Suspect]
     Active Substance: ETOPOSIDE
     Indication: Haemophagocytic lymphohistiocytosis
     Dates: start: 20241213, end: 2024
  2. DEXAMETHASONE [Suspect]
     Active Substance: DEXAMETHASONE
     Indication: Haemophagocytic lymphohistiocytosis
     Route: 042
     Dates: start: 20241213, end: 20241228
  3. VINCRISTINE [Suspect]
     Active Substance: VINCRISTINE
     Indication: Haemophagocytic lymphohistiocytosis
     Dates: start: 20241219, end: 2024
  4. ETOPOSIDE [Suspect]
     Active Substance: ETOPOSIDE
     Indication: Haemophagocytic lymphohistiocytosis
     Dates: start: 20241216, end: 2024
  5. ETOPOSIDE [Suspect]
     Active Substance: ETOPOSIDE
     Indication: Haemophagocytic lymphohistiocytosis
     Dates: start: 20241220, end: 2024
  6. VINCRISTINE [Suspect]
     Active Substance: VINCRISTINE
     Indication: Salvage therapy
     Dates: start: 20241219, end: 2024

REACTIONS (14)
  - Pancytopenia [Fatal]
  - Myelosuppression [Fatal]
  - Cytomegalovirus viraemia [Fatal]
  - Pneumonia parainfluenzae viral [Fatal]
  - Neutropenia [Fatal]
  - Acute respiratory distress syndrome [Fatal]
  - Off label use [Unknown]
  - Pneumonia cytomegaloviral [Fatal]
  - Viral sepsis [Fatal]
  - Deep vein thrombosis [Unknown]
  - Respiratory failure [Fatal]
  - Acute myocardial infarction [Fatal]
  - Multiple organ dysfunction syndrome [Fatal]
  - Shock haemorrhagic [Fatal]

NARRATIVE: CASE EVENT DATE: 20241201
